FAERS Safety Report 5744610-8 (Version None)
Quarter: 2008Q2

REPORT INFORMATION
  Report Type: 
  Country: None (occurrence: None)
  Receive Date: 20080520
  Receipt Date: 20071017
  Transmission Date: 20081010
  Serious: No
  Sender: FDA-Public Use
  Company Number: US-ABBOTT-07P-163-0420953-00

PATIENT
  Sex: Female
  Weight: 66.738 kg

DRUGS (1)
  1. AZMACORT INHALATION [Suspect]
     Indication: ASTHMA
     Route: 055
     Dates: start: 20030101

REACTIONS (4)
  - COUGH [None]
  - DIZZINESS [None]
  - MALAISE [None]
  - NECK PAIN [None]
